FAERS Safety Report 10269834 (Version 1)
Quarter: 2014Q3

REPORT INFORMATION
  Report Type: Report from Study
  Country: CA (occurrence: CA)
  Receive Date: 20140701
  Receipt Date: 20140701
  Transmission Date: 20150326
  Serious: Yes (Hospitalization)
  Sender: FDA-Public Use
  Company Number: CA-JNJFOC-20140617187

PATIENT
  Age: 48 Year
  Sex: Female
  Weight: 110.5 kg

DRUGS (1)
  1. REMICADE [Suspect]
     Active Substance: INFLIXIMAB
     Indication: PRODUCT USED FOR UNKNOWN INDICATION
     Route: 042

REACTIONS (3)
  - Pulmonary embolism [Unknown]
  - Phlebitis [Unknown]
  - Pericardial cyst [Unknown]

NARRATIVE: CASE EVENT DATE: 20140619
